FAERS Safety Report 6212803-1 (Version None)
Quarter: 2009Q2

REPORT INFORMATION
  Report Type: 
  Country: None (occurrence: None)
  Receive Date: 20090603
  Receipt Date: 20090601
  Transmission Date: 20091009
  Serious: Yes (Death)
  Sender: FDA-Public Use
  Company Number: US-ASTRAZENECA-2009UW13857

PATIENT
  Age: 34291 Day
  Sex: Female

DRUGS (3)
  1. NEXIUM [Suspect]
     Route: 048
  2. ZESTRIL [Concomitant]
  3. LASIX [Concomitant]

REACTIONS (1)
  - CARDIAC FAILURE [None]
